FAERS Safety Report 6391837-0 (Version None)
Quarter: 2009Q4

REPORT INFORMATION
  Report Type: 
  Country: None (occurrence: None)
  Receive Date: 20091007
  Receipt Date: 20090928
  Transmission Date: 20100525
  Serious: Yes (Life-Threatening)
  Sender: FDA-Public Use
  Company Number: JP-ABBOTT-09P-087-0597732-00

PATIENT
  Sex: Male
  Weight: 22.4 kg

DRUGS (3)
  1. KLARICID DRY SYRUP [Suspect]
     Indication: RHINITIS ALLERGIC
     Route: 048
  2. KLARICID DRY SYRUP [Suspect]
     Indication: OTITIS MEDIA
  3. CEFMENOXIME HYDROCHLORIDE [Suspect]
     Indication: DRUG USE FOR UNKNOWN INDICATION
     Route: 045

REACTIONS (2)
  - MUCOCUTANEOUS RASH [None]
  - ORAL MUCOSAL ERUPTION [None]
